FAERS Safety Report 7120157-1 (Version None)
Quarter: 2010Q4

REPORT INFORMATION
  Report Type: 
  Country: None (occurrence: None)
  Receive Date: 20101123
  Receipt Date: 20101101
  Transmission Date: 20110411
  Serious: Yes (Hospitalization, Other)
  Sender: FDA-Public Use
  Company Number: US-AMGEN LTD.-QUU405741

PATIENT

DRUGS (9)
  1. NPLATE [Suspect]
     Indication: IDIOPATHIC THROMBOCYTOPENIC PURPURA
     Dosage: 7 A?G/KG, QWK
     Route: 058
     Dates: start: 20100222, end: 20100430
  2. CORTICOSTEROID NOS [Concomitant]
     Dosage: UNK UNK, UNK
     Dates: start: 20100208
  3. IMMU-G [Concomitant]
     Dosage: UNK UNK, UNK
     Dates: start: 20100208
  4. IRON [Concomitant]
  5. FUROSEMIDE [Concomitant]
  6. AMLODIPINE BESYLATE [Concomitant]
  7. FAMOTIDINE [Concomitant]
  8. PREDNISONE [Concomitant]
     Dosage: 60 MG, QD
     Dates: start: 20080201
  9. NYSTATIN [Concomitant]

REACTIONS (5)
  - ANAEMIA [None]
  - DRUG INEFFECTIVE [None]
  - GASTRIC ULCER HAEMORRHAGE [None]
  - GASTRITIS [None]
  - PLATELET COUNT DECREASED [None]
